FAERS Safety Report 9659701 (Version 1)
Quarter: 2013Q4

REPORT INFORMATION
  Report Type: Report from Study
  Country: US (occurrence: US)
  Receive Date: 20131031
  Receipt Date: 20131031
  Transmission Date: 20140711
  Serious: Yes (Other)
  Sender: FDA-Public Use
  Company Number: US-BAYER-2013-132758

PATIENT
  Age: 64 Year
  Sex: Female

DRUGS (4)
  1. BETASERON [Suspect]
     Indication: RELAPSING-REMITTING MULTIPLE SCLEROSIS
     Dosage: UNK
     Dates: start: 20090303, end: 20090305
  2. BETASERON [Suspect]
     Indication: RELAPSING-REMITTING MULTIPLE SCLEROSIS
     Dosage: UNK
     Dates: start: 20100106, end: 20100108
  3. BETASERON [Suspect]
     Indication: RELAPSING-REMITTING MULTIPLE SCLEROSIS
     Dosage: UNK
     Dates: start: 20100302, end: 20100314
  4. BETASERON [Suspect]
     Indication: RELAPSING-REMITTING MULTIPLE SCLEROSIS
     Dosage: 6 MIU, QOD
     Route: 058
     Dates: start: 20100318

REACTIONS (4)
  - Multiple sclerosis relapse [Recovered/Resolved]
  - Muscular weakness [Recovered/Resolved]
  - Gait disturbance [Recovered/Resolved]
  - Hyperthermia [None]
